FAERS Safety Report 9716250 (Version 1)
Quarter: 2013Q4

REPORT INFORMATION
  Report Type: Spontaneous
  Country: US (occurrence: None)
  Receive Date: 20131126
  Receipt Date: 20131126
  Transmission Date: 20140711
  Serious: Yes (Life-Threatening, Hospitalization)
  Sender: FDA-Public Use
  Company Number: None

PATIENT
  Age: 83 Year
  Sex: Female
  Weight: 58.7 kg

DRUGS (11)
  1. XARELTO [Suspect]
     Indication: ATRIAL FIBRILLATION
     Route: 048
     Dates: end: 20130926
  2. SINGULAIR [Concomitant]
  3. LASIX [Concomitant]
  4. KLOR-CON [Concomitant]
  5. AMIODARONE [Concomitant]
  6. CRESTOR [Concomitant]
  7. PEPCID [Concomitant]
  8. CLONAZEPAM [Concomitant]
  9. SENOKOT [Concomitant]
  10. ADVAIR DISCUS [Concomitant]
  11. ALBUTEROL INHALER [Concomitant]

REACTIONS (2)
  - Gastrointestinal haemorrhage [None]
  - Haemoglobin decreased [None]
